FAERS Safety Report 11158087 (Version 6)
Quarter: 2016Q3

REPORT INFORMATION
  Report Type: Report from Study
  Country: CA (occurrence: CA)
  Receive Date: 20150603
  Receipt Date: 20160705
  Transmission Date: 20161109
  Serious: Yes (Other)
  Sender: FDA-Public Use
  Company Number: CA-ROCHE-1347329

PATIENT
  Age: 34 Year
  Sex: Female

DRUGS (10)
  1. VASOTEC (CANADA) [Concomitant]
  2. RITUXAN [Suspect]
     Active Substance: RITUXIMAB
     Indication: GRANULOMATOSIS WITH POLYANGIITIS
     Dosage: LAST RITUXAN DOSE: 19/DEC/2015
     Route: 042
     Dates: start: 20140129
  3. NYSTATIN. [Concomitant]
     Active Substance: NYSTATIN
  4. PREDNISONE. [Concomitant]
     Active Substance: PREDNISONE
  5. DIPHENHYDRAMINE HCL [Concomitant]
     Active Substance: DIPHENHYDRAMINE HYDROCHLORIDE
     Route: 048
     Dates: start: 20140224
  6. ACETAMINOPHEN. [Concomitant]
     Active Substance: ACETAMINOPHEN
     Route: 048
     Dates: start: 20140224
  7. FOLIC ACID. [Concomitant]
     Active Substance: FOLIC ACID
  8. SOLU-MEDROL [Concomitant]
     Active Substance: METHYLPREDNISOLONE SODIUM SUCCINATE
     Route: 065
     Dates: start: 20151219
  9. DECADRON [Concomitant]
     Active Substance: DEXAMETHASONE
     Route: 065
  10. BACTRIM [Concomitant]
     Active Substance: SULFAMETHOXAZOLE\TRIMETHOPRIM

REACTIONS (7)
  - Post procedural haemorrhage [Unknown]
  - Bladder disorder [Unknown]
  - Throat irritation [Recovered/Resolved]
  - Dysuria [Recovering/Resolving]
  - Infusion related reaction [Recovered/Resolved]
  - Sinus congestion [Recovered/Resolved]
  - Heart rate decreased [Unknown]

NARRATIVE: CASE EVENT DATE: 20140129
